FAERS Safety Report 23689176 (Version 1)
Quarter: 2024Q1

REPORT INFORMATION
  Report Type: Spontaneous
  Country: US (occurrence: None)
  Receive Date: 20240330
  Receipt Date: 20240330
  Transmission Date: 20240410
  Serious: Yes (Hospitalization)
  Sender: FDA-Public Use
  Company Number: US-ROCHE-3535056

PATIENT
  Sex: Female

DRUGS (2)
  1. ROZLYTREK [Suspect]
     Active Substance: ENTRECTINIB
     Indication: Lung neoplasm malignant
     Route: 048
     Dates: start: 202402
  2. ROZLYTREK [Suspect]
     Active Substance: ENTRECTINIB
     Dosage: DF: CAPSULE
     Route: 048

REACTIONS (4)
  - Dizziness [Unknown]
  - Fall [Unknown]
  - Ankle fracture [Unknown]
  - Diverticulitis [Unknown]
